FAERS Safety Report 6127791-6 (Version None)
Quarter: 2009Q1

REPORT INFORMATION
  Report Type: 
  Country: None (occurrence: None)
  Receive Date: 20090320
  Receipt Date: 20090320
  Transmission Date: 20090719
  Serious: No
  Sender: FDA-Public Use
  Company Number: None

PATIENT
  Age: 78 Year
  Sex: Female
  Weight: 122.4712 kg

DRUGS (2)
  1. TERAZOL 3 [Suspect]
  2. VASOTEC [Concomitant]

REACTIONS (3)
  - INFECTION [None]
  - MEDICAL DEVICE COMPLICATION [None]
  - SCRATCH [None]
